FAERS Safety Report 7688853-5 (Version None)
Quarter: 2011Q3

REPORT INFORMATION
  Report Type: 
  Country: None (occurrence: None)
  Receive Date: 20110817
  Receipt Date: 20110809
  Transmission Date: 20111222
  Serious: Yes (Hospitalization, Other)
  Sender: FDA-Public Use
  Company Number: PHHY2011JP55269

PATIENT
  Sex: Female
  Weight: 51 kg

DRUGS (7)
  1. AFINITOR [Suspect]
     Indication: METASTATIC RENAL CELL CARCINOMA
     Dosage: 10 MG, DAILY
     Route: 048
     Dates: start: 20110406, end: 20110421
  2. AZUNOL [Concomitant]
     Indication: PROPHYLAXIS
     Dates: start: 20110412
  3. ACETAMINOPHEN [Concomitant]
     Dosage: 1200 MG, UNK
     Route: 048
     Dates: start: 20110519
  4. CANDESARTAN CILEXETIL [Concomitant]
     Dosage: 8 MG, UNK
     Route: 048
  5. AFINITOR [Suspect]
     Dosage: 10 MG, DAILY
     Route: 048
     Dates: start: 20110425, end: 20110512
  6. AFINITOR [Suspect]
     Dosage: 5 MG, DAILY
     Dates: start: 20110610
  7. SELBEX [Concomitant]
     Indication: PROPHYLAXIS
     Dosage: 50 MG, UNK
     Route: 048
     Dates: start: 20110420, end: 20110420

REACTIONS (4)
  - NEOPLASM PROGRESSION [None]
  - NEOPLASM MALIGNANT [None]
  - NEUTROPHIL COUNT DECREASED [None]
  - PNEUMONIA ASPIRATION [None]
